FAERS Safety Report 8051431-2 (Version None)
Quarter: 2012Q1

REPORT INFORMATION
  Report Type: 
  Country: None (occurrence: None)
  Receive Date: 20120117
  Receipt Date: 20120109
  Transmission Date: 20120608
  Serious: Yes (Hospitalization)
  Sender: FDA-Public Use
  Company Number: DE-ASTRAZENECA-2012SE01794

PATIENT
  Age: 26318 Day
  Sex: Male

DRUGS (7)
  1. COSOPT EYE DROPS [Concomitant]
     Route: 031
  2. DIOVAN [Concomitant]
     Route: 048
  3. CRESTOR [Suspect]
     Route: 048
  4. CARVEDILOL [Concomitant]
     Route: 048
  5. ALNA OCAS [Concomitant]
     Route: 048
  6. LEVOTHYROXINE SODIUM [Concomitant]
     Route: 048
  7. MARCUMAR [Concomitant]
     Dosage: AS REQUIRED
     Route: 048
     Dates: start: 20030101

REACTIONS (1)
  - RETINAL ARTERY OCCLUSION [None]
